FAERS Safety Report 20932037 (Version 5)
Quarter: 2022Q4

REPORT INFORMATION
  Report Type: Spontaneous
  Country: US (occurrence: US)
  Receive Date: 20220608
  Receipt Date: 20221128
  Transmission Date: 20230113
  Serious: No
  Sender: FDA-Public Use
  Company Number: US-PFIZER INC-202200808004

PATIENT
  Age: 82 Year
  Sex: Female
  Weight: 90.72 kg

DRUGS (5)
  1. PREMARIN [Suspect]
     Active Substance: ESTROGENS, CONJUGATED
     Indication: Hormone replacement therapy
     Dosage: 1.25
  2. PREMARIN [Suspect]
     Active Substance: ESTROGENS, CONJUGATED
     Dosage: TAKE THE MEDICATION FOR 3 WEEKS THEN TAKE A WEEK OFF
  3. PREMARIN [Suspect]
     Active Substance: ESTROGENS, CONJUGATED
     Dosage: UNK, DAILY
  4. PREMARIN [Suspect]
     Active Substance: ESTROGENS, CONJUGATED
     Dosage: 0.6
  5. PREMARIN [Suspect]
     Active Substance: ESTROGENS, CONJUGATED
     Dosage: 0.9, EVERY MORNING

REACTIONS (7)
  - Therapeutic response unexpected [Unknown]
  - Aggression [Unknown]
  - Feeling jittery [Unknown]
  - Lethargy [Unknown]
  - Hypertension [Unknown]
  - Urinary tract infection [Unknown]
  - Muscle disorder [Unknown]
